FAERS Safety Report 23344991 (Version 1)
Quarter: 2023Q4

REPORT INFORMATION
  Report Type: Report from Study
  Country: US (occurrence: US)
  Receive Date: 20231228
  Receipt Date: 20231228
  Transmission Date: 20240110
  Serious: No
  Sender: FDA-Public Use
  Company Number: US-ALXN-202312USA000350US

PATIENT
  Sex: Female

DRUGS (1)
  1. STRENSIQ [Suspect]
     Active Substance: ASFOTASE ALFA
     Indication: Product used for unknown indication
     Dosage: UNK
     Route: 065
     Dates: start: 20231220

REACTIONS (5)
  - Off label use [Unknown]
  - Poor venous access [Unknown]
  - Anxiety [Unknown]
  - Frustration tolerance decreased [Unknown]
  - Fatigue [Unknown]
